FAERS Safety Report 6631589-X (Version None)
Quarter: 2010Q1

REPORT INFORMATION
  Report Type: 
  Country: None (occurrence: None)
  Receive Date: 20100312
  Receipt Date: 20100310
  Transmission Date: 20100710
  Serious: Yes (Death)
  Sender: FDA-Public Use
  Company Number: PHHY2010AR14448

PATIENT
  Sex: Male

DRUGS (3)
  1. EXELON [Suspect]
     Indication: DEMENTIA
     Dosage: 1.5MG, 2 TABLETS DAILY
     Dates: start: 20060914
  2. HALOPIDOL [Concomitant]
     Route: 058
  3. QUETIAPINE [Concomitant]
     Dosage: 25 MG, UNK

REACTIONS (1)
  - CARDIAC ARREST [None]
